FAERS Safety Report 8880933 (Version 1)
Quarter: 2012Q4

REPORT INFORMATION
  Report Type: 
  Country: US (occurrence: US)
  Receive Date: 20121101
  Receipt Date: 20121101
  Transmission Date: 20130627
  Serious: No
  Sender: FDA-Public Use
  Company Number: US-BAYER-2012-114738

PATIENT
  Sex: Female

DRUGS (1)
  1. ESTRADIOL HEMIHYDRATE [Suspect]
     Dosage: 0.075 mg, CONT
     Route: 062

REACTIONS (3)
  - Depression [None]
  - Mood swings [None]
  - Product adhesion issue [None]
